FAERS Safety Report 4898290-4 (Version None)
Quarter: 2006Q1

REPORT INFORMATION
  Report Type: 
  Country: None (occurrence: None)
  Receive Date: 20060127
  Receipt Date: 20060112
  Transmission Date: 20060701
  Serious: Yes (Hospitalization)
  Sender: FDA-Public Use
  Company Number: USA0508105878

PATIENT
  Age: 89 Year
  Sex: Female
  Weight: 44.5 kg

DRUGS (4)
  1. FORTEO [Suspect]
     Indication: OSTEOPOROSIS
     Dosage: (1/D)
     Dates: start: 20041101, end: 20050101
  2. FORTEO [Suspect]
     Indication: OSTEOPOROSIS
     Dosage: (1/D)
     Dates: start: 20050801
  3. ATENOLOL [Concomitant]
  4. FORTEO PEN (FORTEO PEN) PEN, DISPOSABLE [Concomitant]

REACTIONS (10)
  - ASTHENIA [None]
  - CLOSTRIDIAL INFECTION [None]
  - DYSPNOEA [None]
  - INCONTINENCE [None]
  - LISTLESS [None]
  - MUSCLE DISORDER [None]
  - PHARMACEUTICAL PRODUCT COMPLAINT [None]
  - SINUSITIS [None]
  - SOMNOLENCE [None]
  - WEIGHT DECREASED [None]
